FAERS Safety Report 21906693 (Version 3)
Quarter: 2023Q1

REPORT INFORMATION
  Report Type: Spontaneous
  Country: JP (occurrence: JP)
  Receive Date: 20230125
  Receipt Date: 20230308
  Transmission Date: 20230418
  Serious: Yes (Death, Other)
  Sender: FDA-Public Use
  Company Number: JP-MSD-M2023-02172

PATIENT
  Age: 69 Year
  Sex: Male

DRUGS (6)
  1. LAGEVRIO [Suspect]
     Active Substance: MOLNUPIRAVIR
     Indication: COVID-19 treatment
     Dosage: 800 MILLIGRAM, BID (TAKEN UNTIL THE MORNING OF 19-JAN-2023)
     Route: 048
     Dates: start: 20230117, end: 20230119
  2. ROSUVASTATIN CALCIUM [Concomitant]
     Active Substance: ROSUVASTATIN CALCIUM
     Dosage: UNK
     Route: 048
  3. DAPAGLIFLOZIN [Concomitant]
     Active Substance: DAPAGLIFLOZIN
     Dosage: UNK
     Route: 048
  4. METFORMIN HYDROCHLORIDE [Concomitant]
     Active Substance: METFORMIN HYDROCHLORIDE
     Dosage: UNK
     Route: 065
  5. NIFEDIPINE [Concomitant]
     Active Substance: NIFEDIPINE
     Dosage: UNK
     Route: 065
  6. SOLU-MEDROL [Concomitant]
     Active Substance: METHYLPREDNISOLONE SODIUM SUCCINATE
     Dosage: 1000 MILLIGRAM
     Route: 065
     Dates: start: 20230117, end: 20230119

REACTIONS (1)
  - COVID-19 pneumonia [Fatal]

NARRATIVE: CASE EVENT DATE: 20230117
